FAERS Safety Report 5590330-2 (Version None)
Quarter: 2008Q1

REPORT INFORMATION
  Report Type: 
  Country: None (occurrence: None)
  Receive Date: 20080114
  Receipt Date: 20080109
  Transmission Date: 20080703
  Serious: Yes (Hospitalization, Disabling, Other)
  Sender: FDA-Public Use
  Company Number: GB-RANBAXY-2008RR-12476

PATIENT

DRUGS (6)
  1. SIMVASTATIN 10MG TABLETS [Suspect]
     Indication: HYPERCHOLESTEROLAEMIA
     Dosage: 40 MG, QD
     Route: 048
     Dates: start: 20070814, end: 20071002
  2. CITALOPRAM 20MG TABLET [Concomitant]
     Indication: DEPRESSION
     Dosage: 20 MG, UNK
     Dates: start: 20061011
  3. ISOSORBIDE MONONITRATE [Concomitant]
     Dosage: 40 MG, UNK
     Dates: start: 20070216
  4. METOPROLOL [Concomitant]
     Dosage: 200 MG, UNK
     Dates: start: 20020919
  5. NICORANDIL [Concomitant]
     Dosage: 20 MG, UNK
     Dates: start: 20030206
  6. OMEPRAZOLE [Concomitant]
     Dosage: 40 MG, UNK
     Dates: start: 20030206

REACTIONS (1)
  - ANKLE FRACTURE [None]
